FAERS Safety Report 16628843 (Version 3)
Quarter: 2021Q2

REPORT INFORMATION
  Report Type: Spontaneous
  Country: US (occurrence: US)
  Receive Date: 20190725
  Receipt Date: 20210521
  Transmission Date: 20210716
  Serious: No
  Sender: FDA-Public Use
  Company Number: US-VIFOR (INTERNATIONAL) INC.-VIT-2019-06668

PATIENT
  Sex: Female
  Weight: 101.7 kg

DRUGS (8)
  1. VELTASSA [Suspect]
     Active Substance: PATIROMER
     Route: 048
     Dates: start: 2019
  2. CHLORTHALIDONE. [Concomitant]
     Active Substance: CHLORTHALIDONE
  3. VELTASSA [Suspect]
     Active Substance: PATIROMER
     Indication: HYPERKALAEMIA
     Route: 048
     Dates: start: 20190525
  4. VELTASSA [Suspect]
     Active Substance: PATIROMER
     Route: 048
  5. LISINOPRIL. [Concomitant]
     Active Substance: LISINOPRIL
  6. ROSUVASTATIN. [Concomitant]
     Active Substance: ROSUVASTATIN
  7. VELTASSA [Suspect]
     Active Substance: PATIROMER
     Route: 048
     Dates: start: 20210422
  8. VELTASSA [Suspect]
     Active Substance: PATIROMER
     Route: 048
     Dates: start: 201903

REACTIONS (4)
  - Muscle spasms [Unknown]
  - Off label use [Unknown]
  - Pruritus [Unknown]
  - Rash [Recovered/Resolved]

NARRATIVE: CASE EVENT DATE: 2019
